FAERS Safety Report 11280117 (Version 4)
Quarter: 2019Q4

REPORT INFORMATION
  Report Type: Spontaneous
  Country: US (occurrence: US)
  Receive Date: 20150717
  Receipt Date: 20191122
  Transmission Date: 20200122
  Serious: Yes (Hospitalization, Other)
  Sender: FDA-Public Use
  Company Number: US-JNJFOC-20150422177

PATIENT
  Age: 43 Year
  Sex: Male

DRUGS (2)
  1. ASPIRIN. [Suspect]
     Active Substance: ASPIRIN
     Indication: PRODUCT USED FOR UNKNOWN INDICATION
     Route: 054
  2. XARELTO [Suspect]
     Active Substance: RIVAROXABAN
     Indication: JOINT DISLOCATION
     Route: 048
     Dates: start: 20140613, end: 20140618

REACTIONS (2)
  - Haemorrhage intracranial [Recovering/Resolving]
  - Cerebrovascular accident [Unknown]

NARRATIVE: CASE EVENT DATE: 20140616
